FAERS Safety Report 18883807 (Version 5)
Quarter: 2021Q3

REPORT INFORMATION
  Report Type: Report from Study
  Country: US (occurrence: US)
  Receive Date: 20210211
  Receipt Date: 20210903
  Transmission Date: 20211014
  Serious: Yes (Other)
  Sender: FDA-Public Use
  Company Number: NVSC2021US031909

PATIENT
  Sex: Male

DRUGS (1)
  1. ENTRESTO [Suspect]
     Active Substance: SACUBITRIL\VALSARTAN
     Indication: CARDIAC FAILURE CHRONIC
     Dosage: UNK UNK, UNKNOWN
     Route: 065

REACTIONS (7)
  - Seasonal allergy [Unknown]
  - Blood potassium increased [Unknown]
  - Fatigue [Unknown]
  - Atrial fibrillation [Unknown]
  - Throat clearing [Unknown]
  - Contusion [Unknown]
  - Feeling abnormal [Unknown]
